FAERS Safety Report 6822700-6 (Version None)
Quarter: 2010Q3

REPORT INFORMATION
  Report Type: 
  Country: None (occurrence: None)
  Receive Date: 20100708
  Receipt Date: 20100630
  Transmission Date: 20110219
  Serious: Yes (Other)
  Sender: FDA-Public Use
  Company Number: JP-PFIZER INC-2010081198

PATIENT
  Sex: Male

DRUGS (2)
  1. VFEND [Suspect]
     Dosage: 200 MG, 1X/DAY
     Route: 048
     Dates: start: 20090826
  2. TRACLEER [Suspect]
     Route: 048

REACTIONS (1)
  - DRUG LEVEL DECREASED [None]
